FAERS Safety Report 25225358 (Version 1)
Quarter: 2025Q2

REPORT INFORMATION
  Report Type: Spontaneous
  Country: US (occurrence: US)
  Receive Date: 20250422
  Receipt Date: 20250422
  Transmission Date: 20250717
  Serious: Yes (Other)
  Sender: PROACTIV
  Company Number: US-The Proactiv LLC-2175320

PATIENT
  Age: 62 Year
  Sex: Female

DRUGS (5)
  1. PROACTIV CLEAN MINERAL ACNE CLEANSER [Suspect]
     Active Substance: SULFUR
     Dates: start: 20250320
  2. COSMETICS [Suspect]
     Active Substance: COSMETICS
     Dates: start: 20250320
  3. PROACTIV ACNE BODY WASH [Suspect]
     Active Substance: SALICYLIC ACID
     Dates: start: 20250331
  4. COSMETICS [Suspect]
     Active Substance: COSMETICS
     Dates: start: 20250331
  5. COSMETICS [Suspect]
     Active Substance: COSMETICS
     Dates: start: 20250320

REACTIONS (1)
  - Leukaemia [Not Recovered/Not Resolved]

NARRATIVE: CASE EVENT DATE: 20250407
